FAERS Safety Report 18044481 (Version 1)
Quarter: 2020Q3

REPORT INFORMATION
  Report Type: Spontaneous
  Country: US (occurrence: US)
  Receive Date: 20200720
  Receipt Date: 20200720
  Transmission Date: 20201103
  Serious: Yes (Life-Threatening, Disabling)
  Sender: FDA-Public Use
  Company Number: None

PATIENT
  Age: 44 Year
  Sex: Male
  Weight: 67.5 kg

DRUGS (1)
  1. INVEGA SUSTENNA [Suspect]
     Active Substance: PALIPERIDONE PALMITATE
     Indication: SCHIZOAFFECTIVE DISORDER
     Dosage: ?          QUANTITY:2 INJECTION(S);OTHER FREQUENCY:TWICE IN 1 WEEK;?
     Route: 030
     Dates: start: 20190625, end: 20190701

REACTIONS (11)
  - Restless legs syndrome [None]
  - Tremor [None]
  - Dysarthria [None]
  - Balance disorder [None]
  - Parkinsonism [None]
  - Musculoskeletal stiffness [None]
  - Condition aggravated [None]
  - Muscle rigidity [None]
  - Fall [None]
  - Gait disturbance [None]
  - Drooling [None]

NARRATIVE: CASE EVENT DATE: 20190626
